FAERS Safety Report 22747882 (Version 4)
Quarter: 2023Q4

REPORT INFORMATION
  Report Type: Report from Study
  Country: US (occurrence: US)
  Receive Date: 20230725
  Receipt Date: 20231028
  Transmission Date: 20240109
  Serious: No
  Sender: FDA-Public Use
  Company Number: US-002147023-NVSC2023US163529

PATIENT
  Sex: Male

DRUGS (1)
  1. KISQALI [Suspect]
     Active Substance: RIBOCICLIB
     Indication: Breast cancer
     Dosage: 400 MG, QD
     Route: 048
     Dates: start: 20230711

REACTIONS (6)
  - Brain fog [Unknown]
  - Feeling abnormal [Unknown]
  - Nasal congestion [Unknown]
  - Neck pain [Unknown]
  - Bronchitis [Unknown]
  - Irritability [Unknown]
